FAERS Safety Report 6048712-0 (Version None)
Quarter: 2009Q1

REPORT INFORMATION
  Report Type: 
  Country: None (occurrence: None)
  Receive Date: 20090123
  Receipt Date: 20090114
  Transmission Date: 20090719
  Serious: Yes (Life-Threatening, Hospitalization)
  Sender: FDA-Public Use
  Company Number: GB-ROCHE-606142

PATIENT
  Sex: Female
  Weight: 3.1 kg

DRUGS (1)
  1. CEFTRIAXONE SODIUM [Suspect]
     Indication: CHORIOAMNIONITIS

REACTIONS (1)
  - HYPOXIC ENCEPHALOPATHY [None]
